FAERS Safety Report 7584275-6 (Version None)
Quarter: 2011Q2

REPORT INFORMATION
  Report Type: 
  Country: None (occurrence: None)
  Receive Date: 20110630
  Receipt Date: 20110623
  Transmission Date: 20111010
  Serious: Yes (Hospitalization)
  Sender: FDA-Public Use
  Company Number: US-MYLANLABS-2011S1013060

PATIENT
  Age: 27 Year
  Sex: Female

DRUGS (2)
  1. AMNESTEEM [Suspect]
     Indication: ACNE
     Route: 048
     Dates: start: 20110601, end: 20110617
  2. ORTHO EVRA [Concomitant]

REACTIONS (2)
  - NECK PAIN [None]
  - PULMONARY THROMBOSIS [None]
